FAERS Safety Report 7627031-2 (Version None)
Quarter: 2011Q3

REPORT INFORMATION
  Report Type: 
  Country: None (occurrence: None)
  Receive Date: 20110721
  Receipt Date: 20110715
  Transmission Date: 20111222
  Serious: Yes (Hospitalization)
  Sender: FDA-Public Use
  Company Number: CA-MERCK-1107USA02112

PATIENT
  Age: 81 Year
  Sex: Male
  Weight: 65 kg

DRUGS (10)
  1. FERROUS FUMARATE [Concomitant]
     Route: 048
  2. ASPIRIN [Concomitant]
     Route: 048
  3. ATORVASTATIN CALCIUM [Concomitant]
     Route: 048
  4. ACETAMINOPHEN [Concomitant]
     Route: 065
  5. STALEVO 100 [Suspect]
     Route: 048
  6. ARICEPT [Concomitant]
     Route: 048
  7. QUETIAPINE FUMARATE [Concomitant]
     Route: 048
  8. RAMIPRIL [Concomitant]
     Route: 048
  9. SINEMET [Suspect]
     Route: 048
  10. RABEPRAZOLE SODIUM [Concomitant]
     Route: 048

REACTIONS (3)
  - DEHYDRATION [None]
  - DIARRHOEA [None]
  - HALLUCINATION [None]
